FAERS Safety Report 7772082-0 (Version None)
Quarter: 2011Q3

REPORT INFORMATION
  Report Type: 
  Country: None (occurrence: None)
  Receive Date: 20110922
  Receipt Date: 20110118
  Transmission Date: 20111222
  Serious: No
  Sender: FDA-Public Use
  Company Number: US-ASTRAZENECA-2011SE03123

PATIENT
  Age: 545 Month
  Sex: Female

DRUGS (5)
  1. LEXAPRO [Concomitant]
  2. SOMA [Concomitant]
  3. SEROQUEL XR [Suspect]
     Indication: BIPOLAR DISORDER
     Route: 048
     Dates: start: 20090101
  4. METHADONE HCL [Concomitant]
  5. KLONOPIN [Concomitant]

REACTIONS (7)
  - DEPRESSION [None]
  - ANTISOCIAL BEHAVIOUR [None]
  - MANIA [None]
  - WEIGHT INCREASED [None]
  - DRUG DOSE OMISSION [None]
  - INSOMNIA [None]
  - MULTIPLE SCLEROSIS [None]
